FAERS Safety Report 23182890 (Version 3)
Quarter: 2024Q1

REPORT INFORMATION
  Report Type: Spontaneous
  Country: US (occurrence: US)
  Receive Date: 20231114
  Receipt Date: 20240209
  Transmission Date: 20240410
  Serious: No
  Sender: FDA-Public Use
  Company Number: US-SA-SAC20231102000683

PATIENT
  Age: 48 Year
  Sex: Female

DRUGS (2)
  1. DUPIXENT [Suspect]
     Active Substance: DUPILUMAB
     Dosage: 300 MG, QOW
     Route: 058
  2. OPZELURA [Concomitant]
     Active Substance: RUXOLITINIB PHOSPHATE
     Dosage: UNK UNK, PRN

REACTIONS (10)
  - Eye pain [Recovered/Resolved]
  - Scratch [Unknown]
  - Skin haemorrhage [Unknown]
  - Skin weeping [Unknown]
  - Impaired quality of life [Unknown]
  - Pustule [Unknown]
  - Pruritus [Unknown]
  - Arthralgia [Unknown]
  - Dry eye [Unknown]
  - Therapeutic response decreased [Unknown]

NARRATIVE: CASE EVENT DATE: 20231001
